FAERS Safety Report 23409535 (Version 1)
Quarter: 2024Q1

REPORT INFORMATION
  Report Type: Spontaneous
  Country: CN (occurrence: CN)
  Receive Date: 20240117
  Receipt Date: 20240117
  Transmission Date: 20240410
  Serious: Yes (Hospitalization)
  Sender: FDA-Public Use
  Company Number: CN-Merck Healthcare KGaA-2024001579

PATIENT
  Age: 66 Year
  Sex: Male
  Weight: 62 kg

DRUGS (4)
  1. ERBITUX [Suspect]
     Active Substance: CETUXIMAB
     Indication: Laryngeal squamous cell carcinoma
     Dosage: 800 MG, UNK
     Route: 041
     Dates: start: 20231211, end: 20231211
  2. LOBAPLATIN [Suspect]
     Active Substance: LOBAPLATIN
     Indication: Laryngeal squamous cell carcinoma
     Dosage: 50 MG, DAILY
     Route: 041
     Dates: start: 20231213, end: 20231213
  3. SERPLULIMAB [Suspect]
     Active Substance: SERPLULIMAB
     Indication: Laryngeal squamous cell carcinoma
     Dosage: 300 MG, UNKNOWN
     Route: 041
     Dates: start: 20231211, end: 20231211
  4. PACLITAXEL [Suspect]
     Active Substance: PACLITAXEL
     Indication: Laryngeal squamous cell carcinoma
     Dosage: 400 MG, UNKNOWN
     Route: 041
     Dates: start: 20231212, end: 20231212

REACTIONS (1)
  - Platelet count decreased [Recovering/Resolving]

NARRATIVE: CASE EVENT DATE: 20240104
